FAERS Safety Report 8285685 (Version 30)
Quarter: 2014Q3

REPORT INFORMATION
  Report Type: Report from Study
  Country: FR (occurrence: FR)
  Receive Date: 20111213
  Receipt Date: 20140730
  Transmission Date: 20150326
  Serious: Yes (Hospitalization, Other)
  Sender: FDA-Public Use
  Company Number: FR-JNJFOC-20111201665

PATIENT
  Age: 13 Year
  Sex: Male
  Weight: 43 kg

DRUGS (19)
  1. AZATHIOPRINE. [Concomitant]
     Active Substance: AZATHIOPRINE
     Indication: CROHN^S DISEASE
     Dates: start: 20140212
  2. AZATHIOPRINE. [Concomitant]
     Active Substance: AZATHIOPRINE
     Indication: CROHN^S DISEASE
     Dates: start: 20120708
  3. IRON [Concomitant]
     Active Substance: IRON
  4. CHOLECALCIFEROL [Concomitant]
     Active Substance: CHOLECALCIFEROL
  5. REMICADE [Suspect]
     Active Substance: INFLIXIMAB
     Indication: CROHN^S DISEASE
     Dosage: INTERVAL OF DOSING WAS SHORTENED FROM EVERY 6 WKS TO EVERY 4 WKS TO EXPLAIN THE ^ DOSE INCREASE^
     Route: 042
     Dates: start: 20100301, end: 20120608
  6. REMICADE [Suspect]
     Active Substance: INFLIXIMAB
     Indication: CROHN^S DISEASE
     Route: 042
     Dates: start: 20120708
  7. HUMIRA [Concomitant]
     Active Substance: ADALIMUMAB
     Route: 065
     Dates: start: 20130308
  8. AZATHIOPRINE. [Concomitant]
     Active Substance: AZATHIOPRINE
     Indication: CROHN^S DISEASE
     Dates: start: 201207
  9. PREDNISONE. [Concomitant]
     Active Substance: PREDNISONE
  10. REMICADE [Suspect]
     Active Substance: INFLIXIMAB
     Indication: CROHN^S DISEASE
     Route: 042
     Dates: start: 20130201
  11. DEXCHLORPHENIRAMINE [Concomitant]
     Active Substance: DEXCHLORPHENIRAMINE
     Indication: PREMEDICATION
     Dates: start: 20130201
  12. REMICADE [Suspect]
     Active Substance: INFLIXIMAB
     Indication: CROHN^S DISEASE
     Route: 042
     Dates: start: 20130215
  13. HUMIRA [Concomitant]
     Active Substance: ADALIMUMAB
     Route: 065
     Dates: start: 20130321
  14. HUMIRA [Concomitant]
     Active Substance: ADALIMUMAB
     Route: 065
     Dates: start: 20130222
  15. AZATHIOPRINE. [Concomitant]
     Active Substance: AZATHIOPRINE
     Indication: CROHN^S DISEASE
     Dates: end: 2012
  16. OMEPRAZOLE. [Concomitant]
     Active Substance: OMEPRAZOLE
  17. ANTIBIOTICS [Concomitant]
     Active Substance: UNSPECIFIED INGREDIENT
     Indication: CROHN^S DISEASE
  18. HUMIRA [Concomitant]
     Active Substance: ADALIMUMAB
     Route: 065
     Dates: start: 20140212
  19. ENTERAL NUTRITION [Concomitant]
     Route: 050

REACTIONS (3)
  - Campylobacter infection [Recovered/Resolved]
  - Malnutrition [Recovered/Resolved with Sequelae]
  - Crohn^s disease [Recovered/Resolved with Sequelae]

NARRATIVE: CASE EVENT DATE: 20110701
